FAERS Safety Report 19180503 (Version 2)
Quarter: 2021Q3

REPORT INFORMATION
  Report Type: Spontaneous
  Country: US (occurrence: US)
  Receive Date: 20210426
  Receipt Date: 20210715
  Transmission Date: 20211014
  Serious: Yes (Other)
  Sender: FDA-Public Use
  Company Number: US-PFIZER INC-2021411938

PATIENT
  Age: 46 Year
  Sex: Male
  Weight: 106.12 kg

DRUGS (1)
  1. SUTENT [Suspect]
     Active Substance: SUNITINIB MALATE
     Indication: RENAL CANCER
     Dosage: 50 MG, CYCLIC (1X/DAY, ON DAYS 1?28 EVERY 42 DAYS; 4 WEEKS ON AND 2 WEEKS OFF)
     Route: 048
     Dates: start: 20210223

REACTIONS (11)
  - White blood cell count decreased [Unknown]
  - Burning sensation [Unknown]
  - Dysgeusia [Unknown]
  - Arthralgia [Unknown]
  - Blood creatinine decreased [Unknown]
  - Inflammation [Unknown]
  - Arthritis [Unknown]
  - Oral mucosal blistering [Unknown]
  - Heart rate irregular [Not Recovered/Not Resolved]
  - Thrombosis [Unknown]
  - Tongue injury [Unknown]

NARRATIVE: CASE EVENT DATE: 20210629
